FAERS Safety Report 13277013 (Version 4)
Quarter: 2017Q3

REPORT INFORMATION
  Report Type: Report from Study
  Country: GB (occurrence: GB)
  Receive Date: 20170228
  Receipt Date: 20170711
  Transmission Date: 20171127
  Serious: Yes (Hospitalization)
  Sender: FDA-Public Use
  Company Number: GB-B.I. PHARMACEUTICALS,INC./RIDGEFIELD-2017-BI-005431

PATIENT
  Age: 78 Year
  Sex: Male
  Weight: 85.8 kg

DRUGS (8)
  1. GEMCITABINE [Suspect]
     Active Substance: GEMCITABINE\GEMCITABINE HYDROCHLORIDE
     Indication: BLADDER CANCER
     Route: 042
     Dates: start: 20161215, end: 20170126
  2. CISPLATIN. [Suspect]
     Active Substance: CISPLATIN
     Indication: BLADDER CANCER
     Route: 042
     Dates: start: 20161215, end: 20170126
  3. CANDESARTAN. [Concomitant]
     Active Substance: CANDESARTAN
     Indication: HYPERTENSION
     Route: 048
     Dates: start: 2015
  4. BIBF 1120 [Suspect]
     Active Substance: NINTEDANIB
     Indication: BLADDER CANCER
     Route: 048
     Dates: start: 20161215, end: 20170214
  5. TAMSULOSIN [Concomitant]
     Active Substance: TAMSULOSIN
     Indication: POLLAKIURIA
     Route: 048
     Dates: start: 2010
  6. ASPIRIN. [Concomitant]
     Active Substance: ASPIRIN
     Indication: CORONARY ARTERY DISEASE
     Route: 048
     Dates: start: 2010
  7. LANSOPRAZOLE. [Concomitant]
     Active Substance: LANSOPRAZOLE
     Indication: ABDOMINAL PAIN
     Route: 048
     Dates: start: 2012
  8. SIMVASTATIN. [Concomitant]
     Active Substance: SIMVASTATIN
     Indication: MYOCARDIAL ISCHAEMIA
     Route: 048
     Dates: start: 2010

REACTIONS (3)
  - Dehydration [Not Recovered/Not Resolved]
  - Pyrexia [Recovered/Resolved]
  - Cardiac ventricular thrombosis [Recovered/Resolved]

NARRATIVE: CASE EVENT DATE: 20170116
